FAERS Safety Report 21831536 (Version 1)
Quarter: 2023Q1

REPORT INFORMATION
  Report Type: Report from Study
  Country: US (occurrence: US)
  Receive Date: 20230106
  Receipt Date: 20230106
  Transmission Date: 20230417
  Serious: Yes (Other)
  Sender: FDA-Public Use
  Company Number: US-PFIZER INC-202200081492

PATIENT
  Sex: Female

DRUGS (4)
  1. LYRICA [Suspect]
     Active Substance: PREGABALIN
     Indication: Neuralgia
     Dosage: 300 MG, DAILY (TAKING 75MG IN THE AM AND 225MG AT HS)
     Route: 065
     Dates: start: 2009
  2. DULOXETINE [Concomitant]
     Active Substance: DULOXETINE
     Indication: Product used for unknown indication
     Dosage: 60 MG, DAILY
     Route: 065
  3. CLONAZEPAM [Concomitant]
     Active Substance: CLONAZEPAM
     Indication: Product used for unknown indication
     Dosage: 2 MG, AS NEEDED (2MG TID, PRN)
     Route: 065
  4. OXYCODONE [Concomitant]
     Active Substance: OXYCODONE
     Indication: Pain
     Dosage: UNK
     Route: 065

REACTIONS (12)
  - Suicidal ideation [Unknown]
  - Intracranial aneurysm [Unknown]
  - Eye contusion [Unknown]
  - Blood potassium increased [Unknown]
  - Anxiety [Unknown]
  - Aphasia [Unknown]
  - Amnesia [Unknown]
  - Pain [Unknown]
  - Gait disturbance [Unknown]
  - Fall [Unknown]
  - Confusional state [Unknown]
  - Intentional product misuse [Unknown]
